FAERS Safety Report 25839343 (Version 2)
Quarter: 2025Q4

REPORT INFORMATION
  Report Type: Report from Study
  Country: CN (occurrence: CN)
  Receive Date: 20250924
  Receipt Date: 20251030
  Transmission Date: 20260118
  Serious: Yes (Hospitalization)
  Sender: ALEXION PHARMACEUTICALS
  Company Number: CN-ASTRAZENECA-202509GLO016503CN

PATIENT
  Age: 13 Year
  Sex: Female

DRUGS (11)
  1. SELUMETINIB [Suspect]
     Active Substance: SELUMETINIB
     Indication: Neurofibromatosis
     Dosage: 35 MILLIGRAM, BID
     Dates: start: 20240905, end: 20240922
  2. SELUMETINIB [Suspect]
     Active Substance: SELUMETINIB
     Dosage: UNK UNK, BID
     Dates: start: 20240923, end: 20241013
  3. CIMETIDINE [Concomitant]
     Active Substance: CIMETIDINE
     Indication: Prophylaxis
     Dosage: UNK GRAM, QD
     Route: 065
     Dates: start: 20250919, end: 20250927
  4. METHYLCOBALAMIN [Concomitant]
     Active Substance: METHYLCOBALAMIN
     Indication: Nutritional supplementation
     Dosage: UNK, TID
     Route: 065
     Dates: start: 20250919, end: 20250929
  5. BENZALKONIUM CHLORIDE [Concomitant]
     Active Substance: BENZALKONIUM CHLORIDE
     Dosage: UNK
     Route: 065
  6. DEXAMETHASONE [Concomitant]
     Active Substance: DEXAMETHASONE
     Indication: Nerve oedema
     Dosage: UNK, BID
     Route: 065
     Dates: start: 20250919, end: 20250922
  7. DEXAMETHASONE [Concomitant]
     Active Substance: DEXAMETHASONE
     Dosage: UNK, BID
     Route: 065
     Dates: start: 20250923, end: 20250927
  8. Hemocoagulase [Concomitant]
     Indication: Haemostasis
     Dosage: UNK, QD
     Route: 065
  9. METHYLCOBALAMIN [Concomitant]
     Active Substance: METHYLCOBALAMIN
     Indication: Nutritional supplementation
     Dosage: UNK, ONCE
     Route: 065
     Dates: start: 20250919, end: 20250919
  10. ATROPINE SULFATE [Concomitant]
     Active Substance: ATROPINE SULFATE
  11. METHYLENE BLUE [Concomitant]
     Active Substance: METHYLENE BLUE
     Dosage: UNK, SINGLE
     Route: 065
     Dates: start: 20250923, end: 20250923

REACTIONS (1)
  - Tumour pain [Recovered/Resolved]

NARRATIVE: CASE EVENT DATE: 20250918
